FAERS Safety Report 8513188 (Version 4)
Quarter: 2013Q3

REPORT INFORMATION
  Report Type: Spontaneous
  Country: US (occurrence: US)
  Receive Date: 20120416
  Receipt Date: 20130716
  Transmission Date: 20140515
  Serious: No
  Sender: FDA-Public Use
  Company Number: US-BIOGENIDEC-2012BI011252

PATIENT
  Age: 59 Year
  Sex: Female

DRUGS (1)
  1. TYSABRI [Suspect]
     Indication: MULTIPLE SCLEROSIS
     Route: 042
     Dates: start: 20120328

REACTIONS (39)
  - Abdominal pain upper [Not Recovered/Not Resolved]
  - Heart rate decreased [Not Recovered/Not Resolved]
  - Myalgia [Not Recovered/Not Resolved]
  - Pain in extremity [Not Recovered/Not Resolved]
  - Chromaturia [Not Recovered/Not Resolved]
  - Balance disorder [Recovered/Resolved]
  - Visual impairment [Not Recovered/Not Resolved]
  - Asthenia [Not Recovered/Not Resolved]
  - Fatigue [Not Recovered/Not Resolved]
  - Nausea [Not Recovered/Not Resolved]
  - Dizziness [Recovered/Resolved]
  - Vomiting [Recovered/Resolved]
  - Arthralgia [Not Recovered/Not Resolved]
  - Hypotension [Not Recovered/Not Resolved]
  - Chills [Not Recovered/Not Resolved]
  - Headache [Not Recovered/Not Resolved]
  - Adverse event [Unknown]
  - Vertigo [Recovered/Resolved]
  - White blood cell count increased [Unknown]
  - Cold sweat [Not Recovered/Not Resolved]
  - Sensory disturbance [Not Recovered/Not Resolved]
  - Blindness [Recovered/Resolved]
  - Blindness transient [Not Recovered/Not Resolved]
  - Gait disturbance [Recovered/Resolved]
  - Decreased appetite [Not Recovered/Not Resolved]
  - Pain [Recovered/Resolved]
  - Productive cough [Not Recovered/Not Resolved]
  - Hypoaesthesia [Not Recovered/Not Resolved]
  - Tinnitus [Unknown]
  - Insomnia [Not Recovered/Not Resolved]
  - Neck pain [Not Recovered/Not Resolved]
  - Back pain [Not Recovered/Not Resolved]
  - Injury [Unknown]
  - Anxiety [Recovered/Resolved]
  - Vision blurred [Recovered/Resolved]
  - Eructation [Recovered/Resolved]
  - Deafness unilateral [Not Recovered/Not Resolved]
  - Chest discomfort [Recovered/Resolved]
  - Viral infection [Unknown]
